FAERS Safety Report 8849929 (Version 1)
Quarter: 2012Q4

REPORT INFORMATION
  Report Type: 
  Country: US (occurrence: US)
  Receive Date: 20121019
  Receipt Date: 20121019
  Transmission Date: 20130627
  Serious: Yes (Other)
  Sender: FDA-Public Use
  Company Number: US-JNJFOC-20121008846

PATIENT
  Age: 9 Month
  Sex: Female

DRUGS (1)
  1. DESITIN RAPID RELIEF CREAMY DIAPER RASH [Suspect]
     Indication: PRODUCT USED FOR UNKNOWN INDICATION
     Dosage: a little amount
     Route: 048

REACTIONS (2)
  - Tremor [Not Recovered/Not Resolved]
  - Accidental exposure to product [Unknown]
